FAERS Safety Report 4735658-0 (Version None)
Quarter: 2005Q3

REPORT INFORMATION
  Report Type: 
  Country: None (occurrence: None)
  Receive Date: 20050801
  Receipt Date: 20050801
  Transmission Date: 20060218
  Serious: No
  Sender: FDA-Public Use
  Company Number: None

PATIENT
  Age: 85 Year
  Sex: Male

DRUGS (2)
  1. CEFAZOLIN [Suspect]
     Indication: URINARY TRACT INFECTION
     Dosage: 1 GM Q 8 IV
     Route: 042
     Dates: start: 20050404, end: 20050408
  2. PHENYTOIN [Suspect]
     Indication: CONVULSION PROPHYLAXIS
     Dosage: 100 MG PO TID
     Route: 048
     Dates: start: 20050319

REACTIONS (4)
  - LARYNGEAL OEDEMA [None]
  - OROPHARYNGEAL SWELLING [None]
  - PYREXIA [None]
  - RASH [None]
